FAERS Safety Report 25713655 (Version 1)
Quarter: 2025Q3

REPORT INFORMATION
  Report Type: Spontaneous
  Country: CN (occurrence: CN)
  Receive Date: 20250822
  Receipt Date: 20250822
  Transmission Date: 20251020
  Serious: Yes (Other)
  Sender: TAKEDA
  Company Number: CN-HUTCHMED LIMITED-HMP2025CN02063

PATIENT
  Age: 76 Year
  Sex: Male

DRUGS (3)
  1. FRUQUINTINIB [Suspect]
     Active Substance: FRUQUINTINIB
     Indication: Gastric cancer
     Dates: start: 20250722, end: 20250811
  2. PACLITAXEL [Concomitant]
     Active Substance: PACLITAXEL
     Indication: Gastric cancer
     Dosage: 180 MILLIGRAM, QD
     Dates: start: 20250722, end: 20250722
  3. SERPLULIMAB [Concomitant]
     Active Substance: SERPLULIMAB
     Indication: Gastric cancer
     Dosage: 300 MILLIGRAM, QD
     Dates: start: 20250722, end: 20250722

REACTIONS (3)
  - Granulocytopenia [Recovering/Resolving]
  - Off label use [Unknown]
  - White blood cell count decreased [Recovering/Resolving]

NARRATIVE: CASE EVENT DATE: 20250722
